FAERS Safety Report 6476465-0 (Version None)
Quarter: 2009Q4

REPORT INFORMATION
  Report Type: 
  Country: None (occurrence: None)
  Receive Date: 20091207
  Receipt Date: 20091125
  Transmission Date: 20100525
  Serious: Yes (Hospitalization)
  Sender: FDA-Public Use
  Company Number: IT-ELI_LILLY_AND_COMPANY-IT200910000771

PATIENT
  Sex: Male

DRUGS (4)
  1. BYETTA [Suspect]
     Indication: TYPE 2 DIABETES MELLITUS
     Dosage: 20 UG, DAILY (1/D)
     Route: 058
     Dates: start: 20090525, end: 20090904
  2. GLUCOPHAGE [Concomitant]
     Dosage: 3000 MG, UNK
     Route: 048
     Dates: start: 20090109
  3. TRIATEC [Concomitant]
     Dosage: 30 MG, UNK
     Route: 048
     Dates: start: 20040224
  4. POLYVIDONE [Concomitant]
     Dosage: 40 MG, UNK
     Route: 048
     Dates: start: 20050615

REACTIONS (2)
  - RENAL FAILURE ACUTE [None]
  - URETERIC OBSTRUCTION [None]
